FAERS Safety Report 4953942-2 (Version None)
Quarter: 2006Q1

REPORT INFORMATION
  Report Type: 
  Country: None (occurrence: None)
  Receive Date: 20060327
  Receipt Date: 20040901
  Transmission Date: 20060701
  Serious: Yes (Other)
  Sender: FDA-Public Use
  Company Number: DE-BRISTOL-MYERS SQUIBB COMPANY-13299326

PATIENT
  Sex: Male
  Weight: 65 kg

DRUGS (15)
  1. SUSTIVA [Suspect]
     Indication: HIV INFECTION
     Dosage: NOV-2003, DISCONTINUED BY PATIENT.
     Dates: start: 20030901
  2. REYATAZ [Suspect]
     Indication: HIV INFECTION
     Dates: start: 20040801
  3. VIDEX [Suspect]
     Indication: HIV INFECTION
     Dosage: SEP-2003-250 MG; NOV-2003, DISCONTINUED BY PATIENT THEN RESTARTED 250 MG.
     Dates: start: 20030801
  4. ZERIT [Suspect]
     Indication: HIV INFECTION
     Dosage: INTERRUPTED FOR 3 WEEKS APR-2003; RESTARTED AUG-2004 1X60 MG.
     Dates: start: 20010401
  5. ZIDOVUDINE [Suspect]
     Indication: HIV INFECTION
     Dates: start: 20010301, end: 20010401
  6. ABACAVIR [Suspect]
     Indication: HIV INFECTION
     Dosage: INTERRUPTED FOR 3 WEEKS AND RESTARTED APR-2003.
     Dates: start: 20010301
  7. LOPINAVIR [Suspect]
     Indication: HIV INFECTION
     Dosage: INTERRUPTED FOR 3 WEEKS APR-2003, RESTARTED NOV-2003 SYRUP ONCE DAILY.
     Dates: start: 20010301
  8. RITONAVIR [Suspect]
     Indication: HIV INFECTION
     Dosage: APR-2003, INTERRUPTED FOR 3 WEEKS THEN RESTARTED 2X100 MG. RESTARTED NOV-2003 AND AUG-2004.
     Dates: start: 20010301
  9. INDINIVIR SULFATE [Suspect]
     Indication: HIV INFECTION
     Dosage: 2X600 MG
     Dates: start: 20030401
  10. TENOFOVIR [Suspect]
     Indication: HIV INFECTION
     Dosage: NOV-2003, DISCONTINUED BY PATIENT THEN RESTARTED; RESTARTED AUG-2004.
     Dates: start: 20030401
  11. NEVIRAPINE [Suspect]
     Indication: HIV INFECTION
     Dates: start: 20030801
  12. CITALOPRAM HYDROBROMIDE [Concomitant]
     Indication: MENTAL DISORDER
     Dates: start: 20030401
  13. DOXORUBICIN HYDROCHLORIDE [Concomitant]
     Indication: KAPOSI'S SARCOMA
     Dates: start: 20030401
  14. ALLERGY MEDICATIONS [Concomitant]
     Indication: DRUG ERUPTION
     Dates: start: 20030901
  15. ALLERGY MEDICATIONS [Concomitant]
     Indication: ENANTHEMA
     Dates: start: 20030901

REACTIONS (12)
  - DIARRHOEA [None]
  - DRUG ERUPTION [None]
  - ENANTHEMA [None]
  - ERYTHEMA [None]
  - KAPOSI'S SARCOMA [None]
  - NAUSEA [None]
  - NIGHT SWEATS [None]
  - ORAL CANDIDIASIS [None]
  - RASH MACULO-PAPULAR [None]
  - VIRAL LOAD INCREASED [None]
  - VOMITING [None]
  - WEIGHT DECREASED [None]
